FAERS Safety Report 9465975 (Version 2)
Quarter: 2013Q3

REPORT INFORMATION
  Report Type: Spontaneous
  Country: US (occurrence: US)
  Receive Date: 20130820
  Receipt Date: 20130820
  Transmission Date: 20140515
  Serious: No
  Sender: FDA-Public Use
  Company Number: US-009507513-1307USA010249

PATIENT
  Sex: Female
  Weight: 72.56 kg

DRUGS (10)
  1. MIRALAX [Suspect]
     Indication: INTESTINAL OBSTRUCTION
     Dosage: 102 G, UNKNOWN
     Route: 048
  2. MIRALAX [Suspect]
     Indication: MEDICAL OBSERVATION
  3. SYNTHROID [Concomitant]
     Indication: THYROID DISORDER
     Dosage: UNK, UNKNOWN
  4. ALLOPURINOL [Concomitant]
     Indication: BLOOD URIC ACID INCREASED
     Dosage: UNK, UNKNOWN
  5. CRESTOR [Concomitant]
     Indication: BLOOD CHOLESTEROL ABNORMAL
     Dosage: UNK, UNKNOWN
  6. TORSEMIDE [Concomitant]
     Indication: RENAL IMPAIRMENT
     Dosage: UNK, UNKNOWN
  7. DOXAZOSIN MESYLATE [Concomitant]
     Indication: HYPERTENSION
     Dosage: UNK, UNKNOWN
  8. CLONIDINE [Concomitant]
     Indication: HYPERTENSION
     Dosage: UNK, UNKNOWN
  9. ATIVAN [Concomitant]
     Indication: HYPERTENSION
     Dosage: UNK, UNKNOWN
  10. MINERAL OIL [Concomitant]
     Indication: CONSTIPATION PROPHYLAXIS
     Dosage: UNK, UNKNOWN

REACTIONS (3)
  - Overdose [Unknown]
  - Circumstance or information capable of leading to medication error [Unknown]
  - Off label use [Unknown]
